FAERS Safety Report 18399388 (Version 1)
Quarter: 2020Q4

REPORT INFORMATION
  Report Type: Spontaneous
  Country: US (occurrence: US)
  Receive Date: 20201019
  Receipt Date: 20201019
  Transmission Date: 20210114
  Serious: No
  Sender: FDA-Public Use
  Company Number: US-PFIZER INC-2020080135

PATIENT
  Age: 70 Year
  Sex: Female

DRUGS (1)
  1. XELJANZ XR [Suspect]
     Active Substance: TOFACITINIB CITRATE
     Indication: DIABETES MELLITUS
     Dosage: 11 MG, UNK

REACTIONS (4)
  - Drug effective for unapproved indication [Unknown]
  - Pain [Unknown]
  - Off label use [Unknown]
  - Product use in unapproved indication [Unknown]
